FAERS Safety Report 10640827 (Version 1)
Quarter: 2014Q4

REPORT INFORMATION
  Report Type: Spontaneous
  Country: US (occurrence: None)
  Receive Date: 20141208
  Receipt Date: 20141208
  Transmission Date: 20150529
  Serious: Yes (Other)
  Sender: FDA-Public Use
  Company Number: None

PATIENT
  Age: 45 Year
  Sex: Female
  Weight: 65.77 kg

DRUGS (1)
  1. METHYLPREDNISOLONE. [Suspect]
     Active Substance: METHYLPREDNISOLONE
     Indication: EXPOSURE TO TOXIC AGENT
     Dosage: 6 PILLS FIRST DAY, 5 SECOND, ONCE DAILY, TAKEN BY MOUTH
     Route: 048
     Dates: start: 20141204, end: 20141207

REACTIONS (6)
  - Skin tightness [None]
  - Eye swelling [None]
  - Peripheral swelling [None]
  - Urticaria [None]
  - Swelling face [None]
  - Dysarthria [None]

NARRATIVE: CASE EVENT DATE: 20141207
